FAERS Safety Report 9373777 (Version 2)
Quarter: 2013Q3

REPORT INFORMATION
  Report Type: Report from Study
  Country: BE (occurrence: BE)
  Receive Date: 20130628
  Receipt Date: 20130703
  Transmission Date: 20140515
  Serious: Yes (Hospitalization)
  Sender: FDA-Public Use
  Company Number: BE-AMGEN-BELCT2013045293

PATIENT
  Age: 63 Year
  Sex: Female

DRUGS (6)
  1. ETANERCEPT [Suspect]
     Indication: RHEUMATOID ARTHRITIS
     Dosage: UNK
     Route: 058
     Dates: start: 20071011, end: 20121030
  2. IBUPROFEN [Concomitant]
     Dosage: 800 MG, 1X/DAY
     Route: 048
  3. PROZAC [Concomitant]
     Dosage: QD
     Route: 048
  4. ZYRTEC [Concomitant]
     Dosage: QD
     Route: 048
  5. IMURAN                             /00001501/ [Concomitant]
     Indication: RHEUMATOID ARTHRITIS
     Dosage: UNK
     Route: 048
     Dates: start: 20010411, end: 20121030
  6. PREDNISOLONE [Concomitant]
     Indication: RHEUMATOID ARTHRITIS
     Dosage: 7.5 MG, 1X/DAY
     Route: 048
     Dates: start: 20040805

REACTIONS (3)
  - Arthritis [Recovered/Resolved]
  - Tenosynovitis [Recovered/Resolved]
  - Staphylococcal bacteraemia [Recovered/Resolved]
